FAERS Safety Report 20860891 (Version 7)
Quarter: 2022Q4

REPORT INFORMATION
  Report Type: Spontaneous
  Country: JP (occurrence: JP)
  Receive Date: 20220523
  Receipt Date: 20221020
  Transmission Date: 20230112
  Serious: Yes (Hospitalization, Other)
  Sender: FDA-Public Use
  Company Number: JP-KYOWAKIRIN-2022AKK003110

PATIENT
  Age: 7 Decade
  Sex: Female

DRUGS (42)
  1. PEGFILGRASTIM [Suspect]
     Active Substance: PEGFILGRASTIM
     Indication: Colony stimulating factor therapy
     Dosage: 3.6 MILLIGRAM, QD
     Route: 058
     Dates: start: 20220212, end: 20220212
  2. PEGFILGRASTIM [Suspect]
     Active Substance: PEGFILGRASTIM
     Indication: Neutropenia
     Dosage: 3.6 MILLIGRAM, QD
     Route: 058
     Dates: start: 20220115, end: 20220115
  3. PEGFILGRASTIM [Suspect]
     Active Substance: PEGFILGRASTIM
     Dosage: 3.6 MILLIGRAM
     Route: 058
  4. GEMCITABINE [Concomitant]
     Active Substance: GEMCITABINE
     Indication: Pancreatic carcinoma
     Dosage: 1210 MILLIGRAM
     Route: 041
     Dates: start: 20220210, end: 20220210
  5. GEMCITABINE [Concomitant]
     Active Substance: GEMCITABINE
     Dosage: 1210 MILLIGRAM
     Route: 041
     Dates: start: 20220106, end: 20220106
  6. GEMCITABINE [Concomitant]
     Active Substance: GEMCITABINE
     Dosage: 1210 MILLIGRAM
     Route: 041
     Dates: start: 20220113, end: 20220113
  7. GEMCITABINE [Concomitant]
     Active Substance: GEMCITABINE
     Dosage: 1210 MILLIGRAM
     Route: 041
     Dates: start: 20220203, end: 20220203
  8. ABRAXANE [Concomitant]
     Active Substance: PACLITAXEL
     Indication: Pancreatic carcinoma
     Dosage: 151.25 MILLIGRAM
     Route: 040
     Dates: start: 20220210, end: 20220210
  9. ABRAXANE [Concomitant]
     Active Substance: PACLITAXEL
     Dosage: 151.25 MILLIGRAM
     Route: 040
     Dates: start: 20220106, end: 20220106
  10. ABRAXANE [Concomitant]
     Active Substance: PACLITAXEL
     Dosage: 151.25 MILLIGRAM
     Route: 040
     Dates: start: 20220113, end: 20220113
  11. ABRAXANE [Concomitant]
     Active Substance: PACLITAXEL
     Dosage: 151.25 MILLIGRAM
     Route: 040
     Dates: start: 20220203, end: 20220203
  12. MIROGABALIN BESYLATE [Concomitant]
     Active Substance: MIROGABALIN BESYLATE
     Indication: Neuropathy peripheral
     Dosage: 10 MILLIGRAM, BID
     Route: 048
     Dates: start: 20220127
  13. MAGNESIUM OXIDE [Concomitant]
     Active Substance: MAGNESIUM OXIDE
     Indication: Constipation
     Dosage: 500 MILLIGRAM, TID
     Route: 048
     Dates: start: 20220127
  14. AMITIZA [Concomitant]
     Active Substance: LUBIPROSTONE
     Indication: Constipation
     Dosage: 24 MICROGRAM, BID
     Route: 048
     Dates: start: 20220228
  15. SULFAMETHOXAZOLE\TRIMETHOPRIM [Concomitant]
     Active Substance: SULFAMETHOXAZOLE\TRIMETHOPRIM
     Indication: Antifungal prophylaxis
     Dosage: 1 DOSAGE FORM, QD
     Route: 048
     Dates: start: 20220305
  16. DIOVAN [Concomitant]
     Active Substance: VALSARTAN
     Indication: Hypertension
     Dosage: 40 MILLIGRAM, QD
     Route: 048
  17. CELECOXIB [Concomitant]
     Active Substance: CELECOXIB
     Indication: Arthralgia
     Dosage: 100 MILLIGRAM, BID
     Route: 048
  18. FAMOTIDINE [Concomitant]
     Active Substance: FAMOTIDINE
     Indication: Prophylaxis against gastrointestinal ulcer
     Dosage: 10 MILLIGRAM, BID
     Route: 048
  19. SODIUM FERROUS CITRATE [Concomitant]
     Active Substance: SODIUM FERROUS CITRATE
     Indication: Anaemia
     Dosage: 50 MILLIGRAM, QD
     Route: 048
  20. DOXAZOSIN [Concomitant]
     Active Substance: DOXAZOSIN MESYLATE
     Indication: Hypertension
     Dosage: 1 MILLIGRAM, QD
     Route: 048
  21. SODIUM CHLORIDE [Concomitant]
     Active Substance: SODIUM CHLORIDE
     Indication: Product used for unknown indication
     Dosage: 710 MILLILITER
     Route: 042
     Dates: start: 20220210, end: 20220210
  22. SODIUM CHLORIDE [Concomitant]
     Active Substance: SODIUM CHLORIDE
     Dosage: 710 MILLILITER
     Route: 042
     Dates: start: 20220106, end: 20220106
  23. SODIUM CHLORIDE [Concomitant]
     Active Substance: SODIUM CHLORIDE
     Dosage: 710 MILLILITER
     Route: 042
     Dates: start: 20220113, end: 20220113
  24. SODIUM CHLORIDE [Concomitant]
     Active Substance: SODIUM CHLORIDE
     Dosage: 710 MILLILITER
     Route: 042
     Dates: start: 20220203, end: 20220203
  25. ALOXI [Concomitant]
     Active Substance: PALONOSETRON HYDROCHLORIDE
     Indication: Product used for unknown indication
     Dosage: 0.75 MILLIGRAM, QD
     Route: 042
     Dates: start: 20220210, end: 20220210
  26. ALOXI [Concomitant]
     Active Substance: PALONOSETRON HYDROCHLORIDE
     Dosage: 0.75 MILLIGRAM, QD
     Route: 042
     Dates: start: 20220106, end: 20220106
  27. ALOXI [Concomitant]
     Active Substance: PALONOSETRON HYDROCHLORIDE
     Dosage: 0.75 MILLIGRAM, QD
     Route: 042
     Dates: start: 20220113, end: 20220113
  28. ALOXI [Concomitant]
     Active Substance: PALONOSETRON HYDROCHLORIDE
     Dosage: 0.75 MILLIGRAM, QD
     Route: 042
     Dates: start: 20220203, end: 20220203
  29. DECADRON [Concomitant]
     Active Substance: DEXAMETHASONE
     Indication: Product used for unknown indication
     Dosage: 6.6 MG, QD
     Route: 065
     Dates: start: 20220210, end: 20220210
  30. DECADRON [Concomitant]
     Active Substance: DEXAMETHASONE
     Dosage: 6.6 MILLIGRAM, QD
     Route: 065
     Dates: start: 20220106, end: 20220106
  31. DECADRON [Concomitant]
     Active Substance: DEXAMETHASONE
     Dosage: 6.6 MILLIGRAM, QD
     Route: 065
     Dates: start: 20220113, end: 20220113
  32. DECADRON [Concomitant]
     Active Substance: DEXAMETHASONE
     Dosage: 6.6 MILLIGRAM, QD
     Route: 065
     Dates: start: 20220203, end: 20220203
  33. POTASSIUM CHLORIDE\SODIUM CHLORIDE\SODIUM LACTATE [Concomitant]
     Active Substance: POTASSIUM CHLORIDE\SODIUM CHLORIDE\SODIUM LACTATE
     Indication: Product used for unknown indication
     Dosage: 500 MILLILITER, BID
     Route: 042
     Dates: start: 20220224, end: 20220224
  34. POTASSIUM CHLORIDE\SODIUM CHLORIDE\SODIUM LACTATE [Concomitant]
     Active Substance: POTASSIUM CHLORIDE\SODIUM CHLORIDE\SODIUM LACTATE
     Dosage: 500 MILLILITER, QD
     Route: 042
     Dates: start: 20220225, end: 20220225
  35. POTASSIUM CHLORIDE\SODIUM CHLORIDE\SODIUM LACTATE [Concomitant]
     Active Substance: POTASSIUM CHLORIDE\SODIUM CHLORIDE\SODIUM LACTATE
     Dosage: 500 MILLILITER, BID
     Route: 042
     Dates: start: 20220226, end: 20220226
  36. POTASSIUM CHLORIDE\SODIUM CHLORIDE\SODIUM LACTATE [Concomitant]
     Active Substance: POTASSIUM CHLORIDE\SODIUM CHLORIDE\SODIUM LACTATE
     Dosage: 500 MILLILITER, QD
     Route: 042
     Dates: start: 20220303, end: 20220303
  37. POTASSIUM CHLORIDE\SODIUM CHLORIDE\SODIUM LACTATE [Concomitant]
     Active Substance: POTASSIUM CHLORIDE\SODIUM CHLORIDE\SODIUM LACTATE
     Dosage: 500 MILLILITER, BID
     Route: 042
     Dates: start: 20220304, end: 20220304
  38. CEFMETAZOLE [Concomitant]
     Active Substance: CEFMETAZOLE
     Indication: Product used for unknown indication
     Dosage: 1 DOSAGE FORM, TID
     Route: 041
     Dates: start: 20220224, end: 20220228
  39. CEFMETAZOLE [Concomitant]
     Active Substance: CEFMETAZOLE
     Dosage: 1 DOSAGE FORM, BID
     Route: 041
     Dates: start: 20220303, end: 20220303
  40. CEFMETAZOLE [Concomitant]
     Active Substance: CEFMETAZOLE
     Dosage: 1 DOSAGE FORM, TID
     Route: 041
     Dates: start: 20220304, end: 20220305
  41. URSODIOL [Concomitant]
     Active Substance: URSODIOL
     Indication: Product used for unknown indication
     Dosage: UNK
     Route: 048
     Dates: start: 20220127
  42. LEVOFLOXACIN HEMIHYDRATE [Concomitant]
     Active Substance: LEVOFLOXACIN
     Indication: Product used for unknown indication
     Dosage: UNK
     Route: 048
     Dates: start: 20220127, end: 20220210

REACTIONS (4)
  - Vasculitis [Recovering/Resolving]
  - Cholangitis [Recovered/Resolved]
  - Jaundice cholestatic [Recovered/Resolved]
  - C-reactive protein increased [Recovered/Resolved]

NARRATIVE: CASE EVENT DATE: 20220127
